FAERS Safety Report 9374478 (Version 1)
Quarter: 2013Q2

REPORT INFORMATION
  Report Type: Spontaneous
  Country: GB (occurrence: None)
  Receive Date: 20130624
  Receipt Date: 20130624
  Transmission Date: 20140414
  Serious: Yes (Hospitalization)
  Sender: FDA-Public Use
  Company Number: AUR-APL-2013-05117

PATIENT
  Age: 69 Year
  Sex: Male

DRUGS (3)
  1. FLUCLOXACILLIN (FLUCLOXACILLIN) [Suspect]
     Indication: CELLULITIS
     Route: 048
     Dates: start: 20130507
  2. SIMVASTATIN (SIMVASTATIN) [Suspect]
     Indication: PRODUCT USED FOR UNKNOWN INDICATION
  3. QUININE SULFATE [Suspect]
     Indication: PRODUCT USED FOR UNKNOWN INDICATION

REACTIONS (2)
  - Thrombocytopenia [None]
  - Malaise [None]
